FAERS Safety Report 8510751 (Version 3)
Quarter: 2012Q4

REPORT INFORMATION
  Report Type: 
  Country: US (occurrence: US)
  Receive Date: 20120413
  Receipt Date: 20121008
  Transmission Date: 20130627
  Serious: Yes (Other)
  Sender: FDA-Public Use
  Company Number: US-PFIZER INC-2012087242

PATIENT
  Age: 31 Year
  Sex: Female
  Weight: 82.54 kg

DRUGS (1)
  1. NORGESTRELETHINYL ESTRADIOLPLACEBO [Suspect]
     Indication: CONTRACEPTION
     Dosage: 1 tablet, daily
     Route: 048
     Dates: start: 200906, end: 20111201

REACTIONS (2)
  - Unintended pregnancy [Unknown]
  - Product quality issue [None]
